FAERS Safety Report 15720970 (Version 1)
Quarter: 2018Q4

REPORT INFORMATION
  Report Type: Report from Study
  Country: None (occurrence: NL)
  Receive Date: 20181214
  Receipt Date: 20181214
  Transmission Date: 20190205
  Serious: Yes (Hospitalization)
  Sender: FDA-Public Use
  Company Number: NL-ABBVIE-18P-114-2589226-00

PATIENT
  Age: 83 Year
  Sex: Male
  Weight: 86 kg

DRUGS (8)
  1. LUCRIN DEPOT [Suspect]
     Active Substance: LEUPROLIDE ACETATE
     Indication: PROSTATE CANCER
     Dosage: 30 MG, Q6MONTHS
     Route: 058
     Dates: start: 20130314, end: 201409
  2. GLIMEPIRIDE. [Concomitant]
     Active Substance: GLIMEPIRIDE
     Indication: DIABETES MELLITUS
     Dosage: UNK, QD
     Route: 048
  3. CYPROTERONE ACETATE [Concomitant]
     Active Substance: CYPROTERONE ACETATE
     Indication: PROSTATE CANCER
     Dosage: UNK
     Route: 048
     Dates: start: 201409
  4. BUMETANIDE. [Concomitant]
     Active Substance: BUMETANIDE
     Indication: DIURETIC THERAPY
     Dosage: 2/1 TIME DAILY (2 MG, QD)
  5. LISINOPRIL. [Concomitant]
     Active Substance: LISINOPRIL
     Indication: HYPERTENSION
     Dosage: UNK, QD
     Route: 048
     Dates: start: 201308
  6. CLOPIDOGREL BESYLATE [Concomitant]
     Active Substance: CLOPIDOGREL BESILATE
     Indication: THROMBOSIS
     Dosage: QUNK UNK, QD
     Route: 048
     Dates: start: 201212
  7. FELODIPINE. [Concomitant]
     Active Substance: FELODIPINE
     Indication: HYPERTENSION
     Dosage: UNK UNK, QD
     Route: 048
  8. METOPROLOL SUCCINATE. [Concomitant]
     Active Substance: METOPROLOL SUCCINATE
     Indication: HYPERTENSION
     Dosage: SR (QD)
     Route: 048

REACTIONS (7)
  - Pruritus generalised [Not Recovered/Not Resolved]
  - Hot flush [Not Recovered/Not Resolved]
  - Contusion [Not Recovered/Not Resolved]
  - Pulmonary oedema [Recovering/Resolving]
  - Fatigue [Not Recovered/Not Resolved]
  - Prostatic specific antigen decreased [Unknown]
  - Insomnia [Not Recovered/Not Resolved]

NARRATIVE: CASE EVENT DATE: 2013
